FAERS Safety Report 17864628 (Version 1)
Quarter: 2020Q2

REPORT INFORMATION
  Report Type: Spontaneous
  Country: US (occurrence: US)
  Receive Date: 20200605
  Receipt Date: 20200605
  Transmission Date: 20200714
  Serious: No
  Sender: FDA-Public Use
  Company Number: US-TEVA-2020-US-1245012

PATIENT

DRUGS (1)
  1. IVERMECTIN. [Suspect]
     Active Substance: IVERMECTIN
     Dosage: IVERMECTIN 1% CREAM
     Route: 065

REACTIONS (4)
  - Product odour abnormal [Unknown]
  - Eye irritation [Unknown]
  - Headache [Unknown]
  - Burning sensation [Unknown]
